FAERS Safety Report 9897465 (Version 1)
Quarter: 2014Q1

REPORT INFORMATION
  Report Type: Spontaneous
  Country: DE (occurrence: DE)
  Receive Date: 20140214
  Receipt Date: 20140214
  Transmission Date: 20141002
  Serious: Yes (Other)
  Sender: FDA-Public Use
  Company Number: DE-JNJFOC-20140201996

PATIENT
  Age: 79 Year
  Sex: Male

DRUGS (1)
  1. TOPIRAMATE [Suspect]
     Indication: STATUS EPILEPTICUS
     Route: 048

REACTIONS (3)
  - Status epilepticus [Not Recovered/Not Resolved]
  - Incorrect route of drug administration [Unknown]
  - Off label use [Unknown]
